FAERS Safety Report 8429150-X (Version None)
Quarter: 2012Q2

REPORT INFORMATION
  Report Type: 
  Country: None (occurrence: None)
  Receive Date: 20120612
  Receipt Date: 20120604
  Transmission Date: 20120825
  Serious: Yes (Life-Threatening, Hospitalization, Other)
  Sender: FDA-Public Use
  Company Number: DE-JNJFOC-20120404343

PATIENT
  Sex: Female

DRUGS (5)
  1. LEVOTHYROXINE SODIUM [Concomitant]
     Indication: HYPOTHYROIDISM
     Route: 048
  2. SIMVASTATIN [Concomitant]
     Indication: HYPERCHOLESTEROLAEMIA
     Route: 048
  3. RAMIPRIL [Concomitant]
     Indication: HYPERTENSION
     Route: 048
  4. REMICADE [Suspect]
     Indication: COLITIS ULCERATIVE
     Route: 042
     Dates: start: 20081203, end: 20120106
  5. BONIVA [Concomitant]
     Indication: OSTEOPOROSIS
     Route: 048

REACTIONS (17)
  - LEFT VENTRICULAR FAILURE [None]
  - VASCULAR DEMENTIA [None]
  - AORTIC STENOSIS [None]
  - NERVOUS SYSTEM DISORDER [None]
  - VENOUS INSUFFICIENCY [None]
  - ARTERIOSCLEROSIS [None]
  - VENOUS THROMBOSIS [None]
  - UTERINE MASS [None]
  - RECTAL CANCER [None]
  - ATRIAL FIBRILLATION [None]
  - FALL [None]
  - FAECAL INCONTINENCE [None]
  - MOTOR DYSFUNCTION [None]
  - DERMATITIS [None]
  - GASTROENTERITIS NOROVIRUS [None]
  - ESSENTIAL HYPERTENSION [None]
  - STRESS URINARY INCONTINENCE [None]
